FAERS Safety Report 8188040-0 (Version None)
Quarter: 2012Q1

REPORT INFORMATION
  Report Type: 
  Country: None (occurrence: None)
  Receive Date: 20120306
  Receipt Date: 20120221
  Transmission Date: 20120608
  Serious: Yes (Hospitalization)
  Sender: FDA-Public Use
  Company Number: CA-WATSON-2012-03254

PATIENT
  Age: 59 Year
  Sex: Female

DRUGS (1)
  1. TOPIRAMATE [Suspect]
     Indication: CONVULSION
     Dosage: DOSE INCREASED OVER 2 MONTHS  TO 100 MG TWICE A DAY
     Route: 065

REACTIONS (1)
  - HEMIPARESIS [None]
